FAERS Safety Report 5743846-X (Version None)
Quarter: 2008Q2

REPORT INFORMATION
  Report Type: 
  Country: None (occurrence: None)
  Receive Date: 20080519
  Receipt Date: 20080519
  Transmission Date: 20081010
  Serious: Yes (Hospitalization, Disabling)
  Sender: FDA-Public Use
  Company Number: None

PATIENT
  Sex: Female
  Weight: 64.8644 kg

DRUGS (3)
  1. CETUXIMAB            BMS [Suspect]
     Indication: CHEMOTHERAPY
     Dosage: 425MG          WEEKLY         IV DRIP
     Route: 041
     Dates: start: 20080501, end: 20080505
  2. CETUXIMAB            BMS [Suspect]
     Indication: INVESTIGATION
     Dosage: 425MG          WEEKLY         IV DRIP
     Route: 041
     Dates: start: 20080501, end: 20080505
  3. DASATINIB          BMS [Suspect]
     Indication: CHEMOTHERAPY
     Dosage: 150MG      DAILY         PO
     Route: 048
     Dates: start: 20080430, end: 20080508

REACTIONS (2)
  - TUMOUR HAEMORRHAGE [None]
  - TUMOUR PAIN [None]
